FAERS Safety Report 13841612 (Version 1)
Quarter: 2017Q3

REPORT INFORMATION
  Report Type: Report from Study
  Country: US (occurrence: US)
  Receive Date: 20170807
  Receipt Date: 20170807
  Transmission Date: 20171127
  Serious: No
  Sender: FDA-Public Use
  Company Number: US-AMGEN-USASL2016109773

PATIENT
  Age: 73 Year
  Sex: Male

DRUGS (4)
  1. NPLATE [Suspect]
     Active Substance: ROMIPLOSTIM
     Dosage: UNK
     Route: 065
     Dates: start: 20160811
  2. NPLATE [Suspect]
     Active Substance: ROMIPLOSTIM
     Dosage: 196 MUG, UNK
     Route: 065
     Dates: start: 20160729
  3. NPLATE [Suspect]
     Active Substance: ROMIPLOSTIM
     Indication: IMMUNE THROMBOCYTOPENIC PURPURA
     Dosage: UNK
     Route: 065
     Dates: start: 2013
  4. NPLATE [Suspect]
     Active Substance: ROMIPLOSTIM
     Dosage: 50 MUG, UNK
     Route: 065
     Dates: start: 201603

REACTIONS (3)
  - Therapy non-responder [Unknown]
  - Asthenia [Unknown]
  - Platelet count decreased [Unknown]

NARRATIVE: CASE EVENT DATE: 2016
